FAERS Safety Report 20079802 (Version 1)
Quarter: 2021Q4

REPORT INFORMATION
  Report Type: Spontaneous
  Country: BR (occurrence: None)
  Receive Date: 20211117
  Receipt Date: 20211117
  Transmission Date: 20220303
  Serious: Yes (Other)
  Sender: FDA-Public Use
  Company Number: 2021A803153

PATIENT
  Sex: Female

DRUGS (9)
  1. XIGDUO XR [Suspect]
     Active Substance: DAPAGLIFLOZIN PROPANEDIOL\METFORMIN HYDROCHLORIDE
     Route: 048
     Dates: start: 2019
  2. QTERN [Suspect]
     Active Substance: DAPAGLIFLOZIN\SAXAGLIPTIN HYDROCHLORIDE
     Dosage: 1 TABLET
     Route: 048
     Dates: start: 202104
  3. GLIFAGEM [Concomitant]
     Dosage: 2 TABLETS
     Route: 065
  4. ALEGRA [Concomitant]
     Route: 065
  5. LORATATINE [Concomitant]
     Route: 065
  6. BROMAZEPAM [Concomitant]
     Active Substance: BROMAZEPAM
     Route: 065
  7. VITAMIN D [Concomitant]
     Active Substance: VITAMIN D NOS
     Route: 065
  8. FLUOXETINE [Concomitant]
     Active Substance: FLUOXETINE HYDROCHLORIDE
     Route: 065
  9. UNSPECIFIED INGREDIENT [Concomitant]
     Active Substance: UNSPECIFIED INGREDIENT
     Route: 065

REACTIONS (4)
  - COVID-19 [Unknown]
  - Vulvovaginitis allergic [Not Recovered/Not Resolved]
  - Vulvovaginal pruritus [Not Recovered/Not Resolved]
  - Vulvovaginal candidiasis [Not Recovered/Not Resolved]

NARRATIVE: CASE EVENT DATE: 20200401
